FAERS Safety Report 18307154 (Version 1)
Quarter: 2020Q3

REPORT INFORMATION
  Report Type: Spontaneous
  Country: US (occurrence: US)
  Receive Date: 20200923
  Receipt Date: 20200923
  Transmission Date: 20201103
  Serious: No
  Sender: FDA-Public Use
  Company Number: None

PATIENT
  Age: 52 Year
  Sex: Male
  Weight: 98 kg

DRUGS (1)
  1. SEMAGLUTIDE (SEMAGLUTIDE 0.5MG/0.375ML INJ, SOLN, PEN, 1.5ML) [Suspect]
     Active Substance: SEMAGLUTIDE
     Indication: DIABETES MELLITUS
     Dosage: ?          OTHER STRENGTH:0.5MG/0.375ML, 1.5;?
     Route: 058
     Dates: start: 20200623, end: 20200710

REACTIONS (2)
  - Constipation [None]
  - Abdominal discomfort [None]

NARRATIVE: CASE EVENT DATE: 20200826
